FAERS Safety Report 8816908 (Version 1)
Quarter: 2012Q4

REPORT INFORMATION
  Report Type: Spontaneous
  Country: US (occurrence: None)
  Receive Date: 20121002
  Receipt Date: 20121002
  Transmission Date: 20130627
  Serious: Yes (Other)
  Sender: FDA-Public Use
  Company Number: None

PATIENT
  Age: 62 Year
  Sex: Female
  Weight: 64.41 kg

DRUGS (6)
  1. PROTONIX [Suspect]
     Indication: GERD
     Dosage: 40 mg one/day po
     Route: 048
     Dates: start: 19890101, end: 20120929
  2. PROTONIX [Suspect]
     Indication: NON-ULCER DYSPEPSIA
     Dosage: 40 mg one/day po
     Route: 048
     Dates: start: 19890101, end: 20120929
  3. PROTONIX [Suspect]
     Indication: GERD
     Dates: start: 20120101, end: 20120929
  4. PROTONIX [Suspect]
     Indication: NON-ULCER DYSPEPSIA
     Dates: start: 20120101, end: 20120929
  5. OTHER PPIS - PREVACID [Concomitant]
  6. NEXIUM [Concomitant]

REACTIONS (1)
  - Clostridium difficile infection [None]
